FAERS Safety Report 4607799-X (Version None)
Quarter: 2005Q1

REPORT INFORMATION
  Report Type: 
  Country: None (occurrence: None)
  Receive Date: 20050310
  Receipt Date: 20050301
  Transmission Date: 20050727
  Serious: Yes (Death)
  Sender: FDA-Public Use
  Company Number: 2005031473

PATIENT
  Sex: Male

DRUGS (1)
  1. LINEZOLID TABLET  (LINEZOLID) [Suspect]
     Indication: NOSOCOMIAL INFECTION

REACTIONS (3)
  - BONE MARROW DEPRESSION [None]
  - PANCYTOPENIA [None]
  - SHOCK HAEMORRHAGIC [None]
